FAERS Safety Report 8461338-4 (Version None)
Quarter: 2012Q2

REPORT INFORMATION
  Report Type: 
  Country: None (occurrence: None)
  Receive Date: 20120625
  Receipt Date: 20120613
  Transmission Date: 20120825
  Serious: Yes (Hospitalization)
  Sender: FDA-Public Use
  Company Number: SE-JNJFOC-20120607026

PATIENT
  Age: 52 Year
  Sex: Female

DRUGS (13)
  1. REMICADE [Suspect]
     Route: 042
     Dates: start: 20120201
  2. LIPITOR [Concomitant]
     Route: 065
  3. OMEPRAZOLE [Concomitant]
     Route: 065
  4. REMICADE [Suspect]
     Indication: RHEUMATOID ARTHRITIS
     Route: 042
     Dates: start: 20111219
  5. PLAVIX [Concomitant]
     Route: 065
  6. FERROGLYCINE SULFATE COMPLEX [Concomitant]
     Route: 065
  7. FOLIC ACID [Concomitant]
     Route: 065
  8. GABAPENTIN [Concomitant]
     Route: 065
  9. TEGRETOL [Concomitant]
     Route: 065
  10. METOPROLOL SUCCINATE [Concomitant]
     Route: 065
  11. METHOTREXATE SODIUM [Concomitant]
     Route: 065
  12. BETAPRED [Concomitant]
     Route: 065
  13. ASPIRIN [Concomitant]
     Route: 065

REACTIONS (2)
  - TOXOPLASMOSIS [None]
  - ARTHRALGIA [None]
